FAERS Safety Report 20664627 (Version 1)
Quarter: 2022Q2

REPORT INFORMATION
  Report Type: Spontaneous
  Country: IT (occurrence: IT)
  Receive Date: 20220401
  Receipt Date: 20220401
  Transmission Date: 20220720
  Serious: Yes (Hospitalization, Other)
  Sender: FDA-Public Use
  Company Number: None

PATIENT
  Age: 68 Year
  Sex: Male
  Weight: 68 kg

DRUGS (1)
  1. METHOTREXATE SODIUM [Suspect]
     Active Substance: METHOTREXATE SODIUM
     Indication: Polymyalgia rheumatica
     Dosage: 10 MG, WEEKLY
     Route: 058
     Dates: start: 20210820, end: 20220131

REACTIONS (5)
  - Hypersensitivity pneumonitis [Recovering/Resolving]
  - Dyspnoea [Recovering/Resolving]
  - Chest pain [Recovering/Resolving]
  - Cough [Recovering/Resolving]
  - Off label use [Unknown]

NARRATIVE: CASE EVENT DATE: 20210820
